FAERS Safety Report 9308960 (Version 5)
Quarter: 2013Q4

REPORT INFORMATION
  Report Type: Spontaneous
  Country: US (occurrence: US)
  Receive Date: 20130524
  Receipt Date: 20131031
  Transmission Date: 20140711
  Serious: Yes (Hospitalization, Other)
  Sender: FDA-Public Use
  Company Number: US-009507513-1305USA012206

PATIENT
  Sex: Female

DRUGS (3)
  1. PEGINTRON [Suspect]
     Indication: HEPATITIS C
     Dosage: UNKNOWN, REDIPEN
     Route: 058
     Dates: start: 20130509, end: 20131008
  2. REBETOL [Suspect]
     Indication: HEPATITIS C
     Dosage: UNK
     Route: 048
     Dates: start: 20130509, end: 20131008
  3. VICTRELIS [Suspect]
     Indication: HEPATITIS C
     Dosage: UNK
     Route: 048
     Dates: start: 20130606, end: 20131008

REACTIONS (15)
  - Pneumonia [Unknown]
  - Anaemia [Unknown]
  - Dehydration [Unknown]
  - Leukopenia [Unknown]
  - Irritability [Unknown]
  - Memory impairment [Unknown]
  - White blood cell count decreased [Unknown]
  - Anxiety [Unknown]
  - Platelet count decreased [Unknown]
  - Thrombocytopenia [Unknown]
  - Fatigue [Unknown]
  - Memory impairment [Unknown]
  - Red blood cell count decreased [Unknown]
  - Malaise [Unknown]
  - Transfusion [Unknown]
